FAERS Safety Report 23984849 (Version 4)
Quarter: 2024Q3

REPORT INFORMATION
  Report Type: Spontaneous
  Country: US (occurrence: US)
  Receive Date: 20240618
  Receipt Date: 20240903
  Transmission Date: 20241017
  Serious: Yes (Other)
  Sender: NOVARTIS
  Company Number: US-002147023-NVSC2024US126105

PATIENT

DRUGS (3)
  1. ZOLGENSMA [Suspect]
     Active Substance: ONASEMNOGENE ABEPARVOVEC-XIOI
     Indication: Spinal muscular atrophy
     Dosage: 10 ML, ONCE/SINGLE
     Route: 042
  2. RITUXIMAB [Suspect]
     Active Substance: RITUXIMAB
     Indication: Product used for unknown indication
     Dosage: UNK
     Route: 065
     Dates: end: 20240521
  3. RITUXIMAB [Suspect]
     Active Substance: RITUXIMAB
     Dosage: UNK
     Route: 065
     Dates: end: 20240611

REACTIONS (11)
  - Hypersensitivity [Recovered/Resolved]
  - Anaphylactic reaction [Unknown]
  - Infusion related reaction [Unknown]
  - Urticaria [Unknown]
  - Flushing [Unknown]
  - Rash [Unknown]
  - Nausea [Unknown]
  - Erythema [Unknown]
  - Retching [Unknown]
  - Wheezing [Unknown]
  - Adenovirus infection [Unknown]
